FAERS Safety Report 19159153 (Version 1)
Quarter: 2021Q2

REPORT INFORMATION
  Report Type: Spontaneous
  Country: US (occurrence: US)
  Receive Date: 20210420
  Receipt Date: 20210420
  Transmission Date: 20210717
  Serious: No
  Sender: FDA-Public Use
  Company Number: US-ELI_LILLY_AND_COMPANY-US202104003452

PATIENT
  Sex: Female

DRUGS (3)
  1. PFIZER?BIONTECH COVID?19 VACCINE [Suspect]
     Active Substance: TOZINAMERAN
     Indication: COVID-19 PROPHYLAXIS
     Dosage: UNK, UNKNOWN (1ST DOSE)
     Route: 065
  2. BAMLANIVIMAB 700MG [Suspect]
     Active Substance: BAMLANIVIMAB
     Indication: COVID-19
     Dosage: UNK, SINGLE
     Route: 042
     Dates: start: 20201206, end: 20201206
  3. PFIZER?BIONTECH COVID?19 VACCINE [Suspect]
     Active Substance: TOZINAMERAN
     Dosage: UNK, UNKNOWN (2ND DOSE)
     Route: 065

REACTIONS (16)
  - Bowel movement irregularity [Unknown]
  - Feeling abnormal [Unknown]
  - Emotional disorder [Unknown]
  - Pain in extremity [Unknown]
  - Pruritus [Unknown]
  - Diarrhoea [Unknown]
  - Cough [Unknown]
  - Anxiety [Unknown]
  - Pulmonary congestion [Unknown]
  - Papule [Unknown]
  - Crying [Unknown]
  - Alopecia [Unknown]
  - Constipation [Unknown]
  - Hypokinesia [Unknown]
  - Haemorrhage [Unknown]
  - Lower respiratory tract infection [Unknown]

NARRATIVE: CASE EVENT DATE: 202103
